FAERS Safety Report 7357274-7 (Version None)
Quarter: 2011Q1

REPORT INFORMATION
  Report Type: 
  Country: None (occurrence: None)
  Receive Date: 20110308
  Receipt Date: 20110223
  Transmission Date: 20110831
  Serious: Yes (Hospitalization, Other)
  Sender: FDA-Public Use
  Company Number: 028237

PATIENT
  Sex: Female

DRUGS (6)
  1. CIMZIA [Suspect]
     Indication: CROHN'S DISEASE
     Dosage: (200 MG 1X/2 WEEKS SUBCUTANEOUS), (400 MG 1X/MONTH, DUE FROM 08/MAR/2011 SUBCUTANEOUS)
     Route: 058
     Dates: start: 20080601, end: 20110222
  2. BECLOMETHASONE DIPROPIONATE [Concomitant]
  3. BUTALBITAL ACETAMINOPHEN AND CAFFEINE [Concomitant]
  4. BONIVA [Concomitant]
  5. DAILY VITAMINS [Concomitant]
  6. VENTOLIN [Concomitant]

REACTIONS (8)
  - HEAD INJURY [None]
  - FISTULA [None]
  - DIARRHOEA [None]
  - FALL [None]
  - BARTHOLIN'S CYST [None]
  - INJURY [None]
  - URINARY TRACT INFECTION [None]
  - DRUG DOSE OMISSION [None]
